FAERS Safety Report 5186517-3 (Version None)
Quarter: 2006Q4

REPORT INFORMATION
  Report Type: 
  Country: None (occurrence: None)
  Receive Date: 20061213
  Receipt Date: 20061127
  Transmission Date: 20070319
  Serious: Yes (Life-Threatening, Hospitalization)
  Sender: FDA-Public Use
  Company Number: DSA_29051_2006

PATIENT
  Age: 23 Year
  Sex: Female

DRUGS (2)
  1. TAVOR [Suspect]
     Dosage: 16 MG ONCE PO
     Route: 048
     Dates: start: 20061101, end: 20061101
  2. DOMINAL [Suspect]
     Dosage: DF ONCE PO
     Route: 048
     Dates: start: 20061101, end: 20061101

REACTIONS (5)
  - DIARRHOEA [None]
  - DYSARTHRIA [None]
  - MULTIPLE DRUG OVERDOSE INTENTIONAL [None]
  - SOMNOLENCE [None]
  - SUICIDE ATTEMPT [None]
